FAERS Safety Report 22045896 (Version 1)
Quarter: 2023Q1

REPORT INFORMATION
  Report Type: Spontaneous
  Country: US (occurrence: None)
  Receive Date: 20230227
  Receipt Date: 20230227
  Transmission Date: 20230418
  Serious: No
  Sender: FDA-Public Use
  Company Number: None

PATIENT
  Sex: Female
  Weight: 39.92 kg

DRUGS (14)
  1. SORAFENIB [Suspect]
     Active Substance: SORAFENIB
     Indication: Metastases to lung
     Dosage: FREQUENCY : TWICE A DAY;?
     Route: 048
     Dates: start: 202302, end: 20230227
  2. ALBUTEROL [Concomitant]
     Active Substance: ALBUTEROL
  3. ATROPINE [Concomitant]
     Active Substance: ATROPINE
  4. ERGOCALCIFEROL [Concomitant]
     Active Substance: ERGOCALCIFEROL
  5. HYDRALAZINE [Concomitant]
     Active Substance: HYDRALAZINE HYDROCHLORIDE
  6. ACETAMINOPHEN\HYDROCODONE [Concomitant]
     Active Substance: ACETAMINOPHEN\HYDROCODONE
  7. LEXAPRO [Concomitant]
     Active Substance: ESCITALOPRAM OXALATE
  8. Lubricating Plus Eye Drops [Concomitant]
  9. VITAMINS [Concomitant]
     Active Substance: VITAMINS
  10. POTASSIUM CHLORIDE [Concomitant]
     Active Substance: POTASSIUM CHLORIDE
  11. PREDNISOLONE [Concomitant]
     Active Substance: PREDNISOLONE
  12. PROCHLORPERAZINE [Concomitant]
     Active Substance: PROCHLORPERAZINE
  13. Saline Mist Spray [Concomitant]
  14. SPIRONOLACTONE [Concomitant]
     Active Substance: SPIRONOLACTONE

REACTIONS (1)
  - Hospice care [None]
